FAERS Safety Report 25631900 (Version 2)
Quarter: 2025Q3

REPORT INFORMATION
  Report Type: Report from Study
  Country: CA (occurrence: CA)
  Receive Date: 20250801
  Receipt Date: 20250812
  Transmission Date: 20251020
  Serious: Yes (Other)
  Sender: NOVARTIS
  Company Number: CA-002147023-NVSC2025CA121613

PATIENT
  Age: 59 Year
  Sex: Female

DRUGS (2)
  1. COSENTYX [Suspect]
     Active Substance: SECUKINUMAB
     Indication: Psoriasis
     Dosage: 300 MG, QMO
     Route: 058
     Dates: start: 20250530
  2. METHOTREXATE [Concomitant]
     Active Substance: METHOTREXATE
     Indication: Product used for unknown indication
     Route: 065

REACTIONS (9)
  - Pneumonia [Unknown]
  - Inflammatory bowel disease [Unknown]
  - Vulvovaginal mycotic infection [Unknown]
  - Malaise [Unknown]
  - Diarrhoea [Unknown]
  - Vulvovaginal discomfort [Unknown]
  - Pruritus [Unknown]
  - Burning sensation [Unknown]
  - Feeling abnormal [Unknown]
